FAERS Safety Report 9606342 (Version 2)
Quarter: 2013Q4

REPORT INFORMATION
  Report Type: Spontaneous
  Country: US (occurrence: US)
  Receive Date: 20131008
  Receipt Date: 20131008
  Transmission Date: 20140711
  Serious: No
  Sender: FDA-Public Use
  Company Number: US-AMGEN-USASP2013040599

PATIENT
  Age: 77 Year
  Sex: Female
  Weight: 79.37 kg

DRUGS (7)
  1. PROLIA [Suspect]
     Indication: OSTEOPOROSIS POSTMENOPAUSAL
     Dosage: 60 MG, Q6MO
     Route: 058
     Dates: start: 20120717, end: 20130115
  2. PROLIA [Suspect]
  3. SIMVASTATIN [Concomitant]
     Indication: HYPERLIPIDAEMIA
     Dosage: 20 MG 1/2
     Route: 048
     Dates: start: 2010
  4. SPIRIVA [Concomitant]
     Indication: CHRONIC OBSTRUCTIVE PULMONARY DISEASE
     Dosage: 18 MUG, QD
     Route: 048
     Dates: start: 2004
  5. PLAVIX [Concomitant]
     Indication: CARDIOVASCULAR DISORDER
     Dosage: 75 MG, QD
     Route: 048
     Dates: start: 2004
  6. LISINOPRIL HCTZ [Concomitant]
     Indication: HYPERTENSION
     Dosage: UNK UNK, QD
     Route: 048
     Dates: start: 2004
  7. ASA [Concomitant]
     Dosage: 81 MG, QD
     Route: 048
     Dates: start: 2004

REACTIONS (5)
  - Spinal pain [Recovering/Resolving]
  - Mobility decreased [Recovering/Resolving]
  - Musculoskeletal pain [Recovering/Resolving]
  - Arthralgia [Recovering/Resolving]
  - Bone pain [Recovering/Resolving]
